FAERS Safety Report 4690253-7 (Version None)
Quarter: 2005Q2

REPORT INFORMATION
  Report Type: 
  Country: None (occurrence: None)
  Receive Date: 20050615
  Receipt Date: 20050310
  Transmission Date: 20051028
  Serious: Yes (Hospitalization, Other)
  Sender: FDA-Public Use
  Company Number: US-MERCK-0503USA02286

PATIENT
  Age: 46 Year
  Sex: Female
  Weight: 61 kg

DRUGS (6)
  1. VIOXX [Suspect]
     Indication: ARTHRALGIA
     Route: 048
     Dates: start: 20000106, end: 20030623
  2. VIOXX [Suspect]
     Route: 048
     Dates: start: 20030101, end: 20031001
  3. TOPROL-XL [Concomitant]
     Route: 048
     Dates: start: 20020417, end: 20031205
  4. ASPIRIN [Concomitant]
     Route: 048
     Dates: start: 20010601, end: 20050201
  5. PREMARIN [Concomitant]
     Route: 048
     Dates: start: 20031202
  6. DARVOCET-N 100 [Concomitant]
     Route: 048
     Dates: start: 20000117

REACTIONS (35)
  - ABDOMINAL PAIN [None]
  - ADENOMA BENIGN [None]
  - ADENOMYOSIS [None]
  - ANAEMIA [None]
  - ANGINA PECTORIS [None]
  - AORTIC ATHEROSCLEROSIS [None]
  - APPENDIX DISORDER [None]
  - ARRHYTHMIA [None]
  - CERVICAL CYST [None]
  - CERVICITIS [None]
  - CHEST PAIN [None]
  - CORONARY ARTERY DISEASE [None]
  - EMOTIONAL DISTRESS [None]
  - ENDOMETRIAL DISORDER [None]
  - FAECES DISCOLOURED [None]
  - FLUID RETENTION [None]
  - GASTROENTERITIS [None]
  - HEADACHE [None]
  - HYPERTENSION [None]
  - INTERVERTEBRAL DISC DEGENERATION [None]
  - IRRITABLE BOWEL SYNDROME [None]
  - MENISCUS LESION [None]
  - MIGRAINE [None]
  - MYOCARDIAL INFARCTION [None]
  - OVARIAN CYST [None]
  - PANCREATITIS [None]
  - PIGMENTED NAEVUS [None]
  - REFLUX OESOPHAGITIS [None]
  - SCOLIOSIS [None]
  - SUPRAVENTRICULAR TACHYCARDIA [None]
  - UPPER RESPIRATORY TRACT INFECTION [None]
  - UTERINE INFECTION [None]
  - UTERINE LEIOMYOMA [None]
  - UTERINE PROLAPSE [None]
  - VOMITING [None]
